FAERS Safety Report 21783729 (Version 9)
Quarter: 2024Q2

REPORT INFORMATION
  Report Type: Spontaneous
  Country: US (occurrence: US)
  Receive Date: 20221227
  Receipt Date: 20240401
  Transmission Date: 20240715
  Serious: Yes (Hospitalization, Other)
  Sender: FDA-Public Use
  Company Number: US-PFIZER INC-202201388565

PATIENT
  Age: 91 Year
  Sex: Female
  Weight: 56.689 kg

DRUGS (3)
  1. VYNDAMAX [Suspect]
     Active Substance: TAFAMIDIS
     Indication: Cardiac failure
     Dosage: (IN MORNING)
     Route: 048
     Dates: start: 202107
  2. VYNDAMAX [Suspect]
     Active Substance: TAFAMIDIS
     Indication: Amyloidosis
     Dosage: 61 MG, 1X/DAY
     Route: 048
  3. WARFARIN [Concomitant]
     Active Substance: WARFARIN
     Dosage: UNK

REACTIONS (13)
  - Cardioversion [Unknown]
  - Fall [Unknown]
  - Syncope [Unknown]
  - Product dose omission issue [Unknown]
  - Dry mouth [Unknown]
  - Hypoacusis [Unknown]
  - Fluid intake reduced [Unknown]
  - Dehydration [Unknown]
  - Communication disorder [Unknown]
  - Dyspnoea [Unknown]
  - Malaise [Unknown]
  - Weight decreased [Unknown]
  - Hypertension [Unknown]

NARRATIVE: CASE EVENT DATE: 20240229
